FAERS Safety Report 12567084 (Version 2)
Quarter: 2016Q3

REPORT INFORMATION
  Report Type: Spontaneous
  Country: US (occurrence: US)
  Receive Date: 20160718
  Receipt Date: 20160810
  Transmission Date: 20161109
  Serious: No
  Sender: FDA-Public Use
  Company Number: US-PFIZER INC-2016338382

PATIENT
  Age: 67 Year
  Sex: Male
  Weight: 81.65 kg

DRUGS (1)
  1. VIAGRA [Suspect]
     Active Substance: SILDENAFIL CITRATE
     Indication: ERECTILE DYSFUNCTION
     Dosage: 100 MG, ONE TABLET, 30 MINUTES BEFORE SEXUAL ACTIVITY
     Dates: start: 20100125

REACTIONS (2)
  - Drug ineffective [Unknown]
  - Product quality issue [Unknown]
